FAERS Safety Report 8961215 (Version 1)
Quarter: 2012Q4

REPORT INFORMATION
  Report Type: Report from Study
  Country: CA (occurrence: CA)
  Receive Date: 20121212
  Receipt Date: 20121212
  Transmission Date: 20130627
  Serious: No
  Sender: FDA-Public Use
  Company Number: CA-JNJFOC-20121105638

PATIENT
  Age: 27 Year
  Sex: Female
  Weight: 78.5 kg

DRUGS (7)
  1. REMICADE [Suspect]
     Indication: CROHN^S DISEASE
     Dosage: for several years
     Route: 042
  2. COUMADIN [Concomitant]
     Route: 065
  3. FRISIUM [Concomitant]
     Route: 065
  4. LAMOTRIGINE [Concomitant]
     Route: 065
  5. ADVAIR [Concomitant]
     Dosage: 2 inhalation
     Route: 055
  6. VENTOLIN [Concomitant]
     Route: 065
  7. AZITHROMYCIN [Concomitant]
     Dosage: 3x weekly
     Route: 065

REACTIONS (1)
  - Herpes zoster [Unknown]
